FAERS Safety Report 24203571 (Version 1)
Quarter: 2024Q3

REPORT INFORMATION
  Report Type: Spontaneous
  Country: US (occurrence: US)
  Receive Date: 20240813
  Receipt Date: 20240813
  Transmission Date: 20241016
  Serious: No
  Sender: BRISTOL MYERS SQUIBB
  Company Number: US-BRISTOL-MYERS SQUIBB COMPANY-2024-125810

PATIENT
  Age: 28 Year
  Sex: Female

DRUGS (1)
  1. KENALOG [Suspect]
     Active Substance: TRIAMCINOLONE ACETONIDE
     Indication: Urticaria
     Dates: start: 20240729

REACTIONS (3)
  - Insomnia [Unknown]
  - Mood altered [Unknown]
  - Depression [Unknown]

NARRATIVE: CASE EVENT DATE: 20240729
